FAERS Safety Report 14798549 (Version 1)
Quarter: 2018Q2

REPORT INFORMATION
  Report Type: Spontaneous
  Country: FR (occurrence: FR)
  Receive Date: 20180424
  Receipt Date: 20180424
  Transmission Date: 20180711
  Serious: Yes (Other)
  Sender: FDA-Public Use
  Company Number: FR-MERCK KGAA-2046354

PATIENT
  Sex: Female

DRUGS (2)
  1. LEVOTHYROX 150 NF [Suspect]
     Active Substance: LEVOTHYROXINE SODIUM
  2. NOVOTHYROX [Suspect]
     Active Substance: LEVOTHYROXINE SODIUM
     Indication: HYPOTHYROIDISM

REACTIONS (23)
  - Malaise [None]
  - Alopecia [None]
  - Swelling [None]
  - Abdominal discomfort [None]
  - Dyspnoea [None]
  - Mental impairment [None]
  - Gastrointestinal motility disorder [None]
  - Sleep disorder [None]
  - Headache [None]
  - Fatigue [None]
  - Weight increased [None]
  - Fear of death [None]
  - Depressed mood [None]
  - Aggression [None]
  - Discomfort [None]
  - Palpitations [None]
  - Fear [None]
  - Loss of personal independence in daily activities [None]
  - Hypercholesterolaemia [None]
  - Hypertension [None]
  - Cardiomyopathy [None]
  - Dizziness [None]
  - Asthenia [None]
